FAERS Safety Report 6745948-8 (Version None)
Quarter: 2010Q2

REPORT INFORMATION
  Report Type: 
  Country: None (occurrence: None)
  Receive Date: 20100526
  Receipt Date: 20100521
  Transmission Date: 20101027
  Serious: Yes (Other)
  Sender: FDA-Public Use
  Company Number: FR-SEPTODONT-201000125

PATIENT
  Age: 72 Year
  Sex: Male

DRUGS (5)
  1. DELTAZINE (ARTICAINE HYDROCHLORIDE 4% WITH EPINEPHRINE 1:100,000) [Suspect]
     Indication: LOCAL ANAESTHESIA
     Dosage: DENTAL
     Route: 004
     Dates: start: 20100311
  2. SOLPROL (BISOPROLOL) [Concomitant]
  3. AMLODIPINE [Concomitant]
  4. RENITEC (ENALAPRIL) [Concomitant]
  5. TIMOPTOL (TIMOLOL) [Concomitant]

REACTIONS (1)
  - RETINAL VEIN THROMBOSIS [None]
